FAERS Safety Report 12104137 (Version 1)
Quarter: 2016Q1

REPORT INFORMATION
  Report Type: Spontaneous
  Country: MX (occurrence: MX)
  Receive Date: 20160223
  Receipt Date: 20160223
  Transmission Date: 20160526
  Serious: Yes (Other)
  Sender: FDA-Public Use
  Company Number: MX-ROCHE-1714838

PATIENT
  Age: 4 Year
  Sex: Male
  Weight: 17 kg

DRUGS (2)
  1. ROCEPHIN [Suspect]
     Active Substance: CEFTRIAXONE SODIUM
     Dosage: 3 INJECTIONS
     Route: 042
     Dates: start: 20160213, end: 20160214
  2. ROCEPHIN [Suspect]
     Active Substance: CEFTRIAXONE SODIUM
     Indication: PHARYNGITIS
     Dosage: 3 INJECTIONS
     Route: 042
     Dates: start: 201501, end: 201501

REACTIONS (5)
  - Eye inflammation [Recovered/Resolved]
  - Eye pain [Not Recovered/Not Resolved]
  - Facial pain [Recovered/Resolved]
  - Eye infection [Not Recovered/Not Resolved]
  - Sarcoma [Not Recovered/Not Resolved]

NARRATIVE: CASE EVENT DATE: 201501
